FAERS Safety Report 8050626-1 (Version None)
Quarter: 2012Q1

REPORT INFORMATION
  Report Type: 
  Country: None (occurrence: None)
  Receive Date: 20120117
  Receipt Date: 20120117
  Transmission Date: 20120608
  Serious: Yes (Other)
  Sender: FDA-Public Use
  Company Number: None

PATIENT
  Age: 42 Year
  Sex: Male
  Weight: 95.254 kg

DRUGS (1)
  1. LANTUS [Suspect]
     Indication: DIABETES MELLITUS
     Dosage: 20 UNITS
     Route: 058
     Dates: start: 20090901, end: 20120113

REACTIONS (6)
  - SKIN IRRITATION [None]
  - PAIN [None]
  - AMNESIA [None]
  - ARRHYTHMIA [None]
  - NODULE [None]
  - PRURITUS [None]
